FAERS Safety Report 6873609-3 (Version None)
Quarter: 2010Q3

REPORT INFORMATION
  Report Type: 
  Country: None (occurrence: None)
  Receive Date: 20100723
  Receipt Date: 20090402
  Transmission Date: 20110219
  Serious: No
  Sender: FDA-Public Use
  Company Number: US-PFIZER INC-2009169177

PATIENT
  Sex: Female
  Weight: 139.68 kg

DRUGS (3)
  1. CHANTIX [Suspect]
     Indication: SMOKING CESSATION THERAPY
     Dosage: UNK
     Dates: start: 20090101
  2. VALSARTAN [Concomitant]
     Dosage: UNK
  3. XANAX [Concomitant]
     Indication: PANIC ATTACK
     Dosage: UNK
     Dates: start: 19860101

REACTIONS (9)
  - ABDOMINAL PAIN UPPER [None]
  - DRUG INEFFECTIVE [None]
  - FRUSTRATION [None]
  - HEADACHE [None]
  - MALAISE [None]
  - NAUSEA [None]
  - NERVOUSNESS [None]
  - SALIVARY HYPERSECRETION [None]
  - TREMOR [None]
